FAERS Safety Report 7352156-9 (Version None)
Quarter: 2011Q1

REPORT INFORMATION
  Report Type: 
  Country: None (occurrence: None)
  Receive Date: 20110309
  Receipt Date: 20110309
  Transmission Date: 20110831
  Serious: Yes (Hospitalization)
  Sender: FDA-Public Use
  Company Number: None

PATIENT
  Age: 46 Year
  Sex: Female
  Weight: 90.8555 kg

DRUGS (13)
  1. LISINOPRIL [Concomitant]
  2. INSULIN [Concomitant]
  3. TARCEVA [Suspect]
     Indication: PANCREATIC CARCINOMA
     Dosage: 150 MG Q HS PO
     Route: 048
     Dates: start: 20110301, end: 20110303
  4. ASPIRIN [Concomitant]
  5. FLEXERIL [Concomitant]
  6. ZOCOR [Concomitant]
  7. BENAZEPRIL [Concomitant]
  8. METOPROLOL [Concomitant]
  9. TRAMADOL [Concomitant]
  10. CATAPRES [Concomitant]
  11. PLAVIX [Concomitant]
  12. AMLODIPINE [Concomitant]
  13. NOVOLIN 70/30 [Concomitant]

REACTIONS (1)
  - MYOCARDIAL INFARCTION [None]
